FAERS Safety Report 8835615 (Version 2)
Quarter: 2012Q4

REPORT INFORMATION
  Report Type: 
  Country: DE (occurrence: DE)
  Receive Date: 20121011
  Receipt Date: 20121030
  Transmission Date: 20130627
  Serious: Yes (Hospitalization, Other)
  Sender: FDA-Public Use
  Company Number: DE-JNJFOC-20121006509

PATIENT
  Age: 83 Year
  Sex: Female
  Weight: 85 kg

DRUGS (8)
  1. XARELTO [Suspect]
     Indication: THROMBOSIS
     Route: 048
     Dates: start: 20120704
  2. XARELTO [Suspect]
     Indication: THROMBOSIS
     Route: 048
     Dates: start: 20120704
  3. SULFASALAZIN [Concomitant]
  4. BISOPROLOL [Concomitant]
  5. PREDNISOLON [Concomitant]
     Route: 065
  6. AMLODIPIN [Concomitant]
  7. TILIDINE [Concomitant]
  8. ALENDRONIC ACID [Concomitant]
     Route: 065

REACTIONS (3)
  - Pulmonary embolism [Recovering/Resolving]
  - Deep vein thrombosis [Recovering/Resolving]
  - Anaemia [Recovering/Resolving]
